FAERS Safety Report 18585759 (Version 1)
Quarter: 2020Q4

REPORT INFORMATION
  Report Type: Spontaneous
  Country: US (occurrence: US)
  Receive Date: 20201205
  Receipt Date: 20201205
  Transmission Date: 20210114
  Serious: No
  Sender: FDA-Public Use
  Company Number: None

PATIENT
  Age: 23 Year
  Sex: Female

DRUGS (1)
  1. DEXTROAMPHETAMINE 10MG [Suspect]
     Active Substance: DEXTROAMPHETAMINE
     Indication: ATTENTION DEFICIT HYPERACTIVITY DISORDER
     Dosage: ?          QUANTITY:90 TABLET(S);?
     Route: 048
     Dates: start: 20201202

REACTIONS (6)
  - Product quality issue [None]
  - Wrong technique in product usage process [None]
  - Product substitution issue [None]
  - Hunger [None]
  - Product size issue [None]
  - Drug ineffective [None]

NARRATIVE: CASE EVENT DATE: 20201202
